FAERS Safety Report 7448343-1 (Version None)
Quarter: 2011Q2

REPORT INFORMATION
  Report Type: 
  Country: None (occurrence: None)
  Receive Date: 20110429
  Receipt Date: 20100512
  Transmission Date: 20111010
  Serious: No
  Sender: FDA-Public Use
  Company Number: US-ASTRAZENECA-2010SE21843

PATIENT
  Sex: Female

DRUGS (3)
  1. NEXIUM [Suspect]
     Route: 048
  2. NEXIUM [Suspect]
     Route: 048
  3. NEXIUM [Suspect]
     Route: 048

REACTIONS (6)
  - COUGH [None]
  - GINGIVAL PAIN [None]
  - ABDOMINAL DISCOMFORT [None]
  - DRY MOUTH [None]
  - ORAL PAIN [None]
  - GLOSSODYNIA [None]
